FAERS Safety Report 7533810-2 (Version None)
Quarter: 2011Q2

REPORT INFORMATION
  Report Type: 
  Country: None (occurrence: None)
  Receive Date: 20110608
  Receipt Date: 20060511
  Transmission Date: 20111010
  Serious: Yes (Hospitalization, Other)
  Sender: FDA-Public Use
  Company Number: PHHO2006BR03311

PATIENT
  Age: 57 Year
  Sex: Male

DRUGS (2)
  1. DIOVAN HCT [Suspect]
     Indication: HYPERTENSION
     Dosage: 185 MG, QD
     Route: 048
     Dates: start: 20050101
  2. CRESTOR [Concomitant]
     Dosage: 80 MG, QD

REACTIONS (2)
  - MALAISE [None]
  - VASCULAR OCCLUSION [None]
